FAERS Safety Report 24181371 (Version 4)
Quarter: 2025Q1

REPORT INFORMATION
  Report Type: Report from Study
  Country: US (occurrence: US)
  Receive Date: 20240807
  Receipt Date: 20250115
  Transmission Date: 20250409
  Serious: Yes (Other)
  Sender: ABBVIE
  Company Number: US-ABBVIE-5865830

PATIENT
  Age: 93 Year
  Sex: Female
  Weight: 69 kg

DRUGS (3)
  1. RINVOQ [Suspect]
     Active Substance: UPADACITINIB
     Indication: Rheumatoid arthritis
     Route: 048
     Dates: start: 20200422
  2. LOSARTAN [Concomitant]
     Active Substance: LOSARTAN
     Indication: Product used for unknown indication
     Route: 048
     Dates: start: 20241004
  3. METHOTREXATE [Concomitant]
     Active Substance: METHOTREXATE
     Indication: Product used for unknown indication

REACTIONS (7)
  - Melanocytic naevus [Recovered/Resolved]
  - Squamous cell carcinoma of skin [Recovered/Resolved]
  - Lip squamous cell carcinoma [Recovered/Resolved]
  - Neoplasm malignant [Recovered/Resolved]
  - Skin cancer [Unknown]
  - Skin cancer [Recovered/Resolved]
  - Skin cancer [Unknown]

NARRATIVE: CASE EVENT DATE: 20220101
